FAERS Safety Report 14519065 (Version 13)
Quarter: 2021Q1

REPORT INFORMATION
  Report Type: Report from Study
  Country: IL (occurrence: IL)
  Receive Date: 20180212
  Receipt Date: 20210309
  Transmission Date: 20210419
  Serious: Yes (Other)
  Sender: FDA-Public Use
  Company Number: IL-JNJFOC-20180208814

PATIENT
  Age: 56 Year
  Sex: Female

DRUGS (1)
  1. STELARA [Suspect]
     Active Substance: USTEKINUMAB
     Indication: PSORIATIC ARTHROPATHY
     Route: 058
     Dates: end: 20191215

REACTIONS (13)
  - Gingivitis [Recovering/Resolving]
  - Abscess [Unknown]
  - Pancreatic neoplasm [Not Recovered/Not Resolved]
  - Hepatic lesion [Not Recovered/Not Resolved]
  - Pneumonia [Recovered/Resolved]
  - Inflammation [Unknown]
  - Psoriatic arthropathy [Not Recovered/Not Resolved]
  - Renal cyst haemorrhage [Recovered/Resolved]
  - Arthropathy [Not Recovered/Not Resolved]
  - Sinusitis [Recovered/Resolved]
  - Intestinal obstruction [Recovered/Resolved]
  - Intestinal malrotation [Recovered/Resolved]
  - Drug ineffective [Unknown]

NARRATIVE: CASE EVENT DATE: 2016
